FAERS Safety Report 4334479-0 (Version None)
Quarter: 2004Q2

REPORT INFORMATION
  Report Type: 
  Country: None (occurrence: None)
  Receive Date: 20040407
  Receipt Date: 20040326
  Transmission Date: 20050107
  Serious: Yes (Hospitalization)
  Sender: FDA-Public Use
  Company Number: MX-BRISTOL-MYERS SQUIBB COMPANY-12542627

PATIENT
  Age: 61 Year
  Sex: Female

DRUGS (4)
  1. ABATACEPT [Suspect]
     Indication: RHEUMATOID ARTHRITIS
     Route: 042
     Dates: start: 20030428
  2. METHOTREXATE [Suspect]
     Dates: start: 20000726
  3. DICLOFENAC SODIUM [Concomitant]
     Dates: start: 20001128
  4. FOLIC ACID [Concomitant]
     Dates: start: 19941014

REACTIONS (9)
  - ABDOMINAL PAIN [None]
  - CYSTITIS [None]
  - DEHYDRATION [None]
  - ESCHERICHIA SEPSIS [None]
  - HYPOTENSION [None]
  - NAUSEA [None]
  - PYELONEPHRITIS ACUTE [None]
  - URINARY TRACT INFECTION [None]
  - VOMITING [None]
